FAERS Safety Report 6478164 (Version 8)
Quarter: 2013Q2

REPORT INFORMATION
  Report Type: Spontaneous
  Country: US (occurrence: None)
  Receive Date: 20071130
  Receipt Date: 20120515
  Transmission Date: 20140414
  Serious: Yes (Other)
  Sender: FDA-Public Use
  Company Number: PHEH2007US15188

PATIENT
  Age: 55 Year
  Sex: Male

DRUGS (5)
  1. ZOMETA [Suspect]
     Indication: PLASMA CELL MYELOMA
     Route: 042
     Dates: start: 20020620, end: 20060807
  2. THALIDOMIDE [Suspect]
     Indication: PLASMA CELL MYELOMA
     Dosage: 300 MG, QD, ORAL ; 400 MG, QD, ORAL ; 200 MG, QD, ORAL ; 200 MG, QD, ORAL
     Route: 048
     Dates: start: 20030113, end: 20030214
  3. METHADONE HYDROCHLORIDE [Concomitant]
  4. ALBUTEROL SULFATE [Concomitant]
  5. PROVIT (VITAMINS NOS) [Concomitant]

REACTIONS (13)
  - OSTEONECROSIS OF JAW [None]
  - PAIN IN JAW [None]
  - ORAL SURGERY [None]
  - BONE LESION [None]
  - BONE DISORDER [None]
  - ERYTHEMA [None]
  - OEDEMA [None]
  - IMPAIRED HEALING [None]
  - COMPUTERISED TOMOGRAM ABNORMAL [None]
  - TOOTH EXTRACTION [None]
  - OSTEOMYELITIS [None]
  - SOFT TISSUE INFECTION [None]
  - BONE DEBRIDEMENT [None]
